FAERS Safety Report 10479074 (Version 3)
Quarter: 2015Q1

REPORT INFORMATION
  Report Type: Not Available
  Country: FR (occurrence: FR)
  Receive Date: 20140926
  Receipt Date: 20150327
  Transmission Date: 20150720
  Serious: Yes (Death, Hospitalization, Other)
  Sender: FDA-Public Use
  Company Number: FR-MUNDIPHARMA DS AND PHARMACOVIGILANCE-GBR-2014-0021804

PATIENT
  Age: 79 Year
  Sex: Female

DRUGS (6)
  1. OXYCONTIN [Suspect]
     Active Substance: OXYCODONE HYDROCHLORIDE
     Indication: PAIN
     Route: 048
  2. RIVOTRIL [Concomitant]
     Active Substance: CLONAZEPAM
  3. PREVISCAN                          /00261401/ [Concomitant]
     Active Substance: PENTOXIFYLLINE
  4. DAFALGAN CODEINE [Concomitant]
     Active Substance: ACETAMINOPHEN\CODEINE PHOSPHATE
  5. OXYNORM [Suspect]
     Active Substance: OXYCODONE HYDROCHLORIDE
     Indication: PAIN
     Route: 048
  6. ATENOLOL. [Concomitant]
     Active Substance: ATENOLOL

REACTIONS (6)
  - Pneumonia aspiration [Unknown]
  - Alveolitis allergic [Unknown]
  - Septic shock [Unknown]
  - Accidental overdose [Fatal]
  - Respiratory disorder [Unknown]
  - Coma [Fatal]

NARRATIVE: CASE EVENT DATE: 20140711
